FAERS Safety Report 15868473 (Version 1)
Quarter: 2019Q1

REPORT INFORMATION
  Report Type: Spontaneous
  Country: US (occurrence: US)
  Receive Date: 20190125
  Receipt Date: 20190125
  Transmission Date: 20190417
  Serious: Yes (Hospitalization)
  Sender: FDA-Public Use
  Company Number: None

PATIENT
  Age: 63 Year
  Sex: Male
  Weight: 96.9 kg

DRUGS (7)
  1. MYCOPHENOLIC ACID. [Concomitant]
     Active Substance: MYCOPHENOLIC ACID
     Dates: start: 20190111
  2. PREDNISONE. [Concomitant]
     Active Substance: PREDNISONE
     Dates: start: 20190114
  3. TACROLIMUS. [Concomitant]
     Active Substance: TACROLIMUS
     Dates: start: 20190113
  4. THYMOGLOBULIN [Suspect]
     Active Substance: LAPINE T-LYMPHOCYTE IMMUNE GLOBULIN
     Indication: PROPHYLAXIS AGAINST TRANSPLANT REJECTION
     Route: 041
     Dates: start: 20190111, end: 20190113
  5. METHYLPREDNISOLONE. [Concomitant]
     Active Substance: METHYLPREDNISOLONE
     Dates: start: 20190111, end: 20190113
  6. ACEAMINOPHEN [Concomitant]
     Dates: start: 20190111, end: 20190113
  7. FEXOFENADINE [Concomitant]
     Active Substance: FEXOFENADINE\FEXOFENADINE HYDROCHLORIDE
     Dates: start: 20190111, end: 20190113

REACTIONS (5)
  - Nausea [None]
  - Atrial fibrillation [None]
  - Tachycardia [None]
  - Vomiting [None]
  - Pyrexia [None]

NARRATIVE: CASE EVENT DATE: 20190113
